FAERS Safety Report 25455221 (Version 1)
Quarter: 2025Q2

REPORT INFORMATION
  Report Type: Spontaneous
  Country: GB (occurrence: GB)
  Receive Date: 20250619
  Receipt Date: 20250619
  Transmission Date: 20250717
  Serious: Yes (Disabling, Other)
  Sender: CHEPLAPHARM
  Company Number: None

PATIENT
  Age: 21 Year
  Sex: Female
  Weight: 53 kg

DRUGS (2)
  1. OLANZAPINE [Suspect]
     Active Substance: OLANZAPINE
     Indication: Suicidal ideation
     Dates: start: 202412, end: 202503
  2. OLANZAPINE [Suspect]
     Active Substance: OLANZAPINE
     Indication: Migraine
     Dates: start: 202412, end: 202503

REACTIONS (2)
  - Insomnia [Not Recovered/Not Resolved]
  - Product use in unapproved indication [Recovered/Resolved]

NARRATIVE: CASE EVENT DATE: 20241201
